FAERS Safety Report 7389985-1 (Version None)
Quarter: 2011Q2

REPORT INFORMATION
  Report Type: 
  Country: None (occurrence: None)
  Receive Date: 20110401
  Receipt Date: 20110318
  Transmission Date: 20111010
  Serious: Yes (Other)
  Sender: FDA-Public Use
  Company Number: FR-GENENTECH-315917

PATIENT
  Sex: Female

DRUGS (2)
  1. XOLAIR [Suspect]
     Route: 058
  2. XOLAIR [Suspect]
     Indication: ASTHMA
     Route: 058

REACTIONS (1)
  - SUPERIOR VENA CAVA SYNDROME [None]
